FAERS Safety Report 10788604 (Version 3)
Quarter: 2015Q2

REPORT INFORMATION
  Report Type: Report from Study
  Country: US (occurrence: US)
  Receive Date: 20150212
  Receipt Date: 20150423
  Transmission Date: 20150821
  Serious: Yes (Hospitalization, Other)
  Sender: FDA-Public Use
  Company Number: US-GILEAD-2015-0136666

PATIENT
  Age: 54 Year
  Sex: Female

DRUGS (4)
  1. AMBRISENTAN [Suspect]
     Active Substance: AMBRISENTAN
     Indication: CONNECTIVE TISSUE DISORDER
  2. ADCIRCA [Concomitant]
     Active Substance: TADALAFIL
  3. AMBRISENTAN [Suspect]
     Active Substance: AMBRISENTAN
     Indication: PULMONARY HYPERTENSION
     Dosage: 5 MG, QD
     Route: 065
     Dates: start: 20141101
  4. ORENITRAM [Concomitant]
     Active Substance: TREPROSTINIL

REACTIONS (7)
  - Dizziness [Unknown]
  - Liver injury [Unknown]
  - Ascites [Unknown]
  - Dyspnoea [Unknown]
  - Fluid retention [Unknown]
  - Abdominal pain [Unknown]
  - Fluid overload [Unknown]
